FAERS Safety Report 8880975 (Version 1)
Quarter: 2012Q4

REPORT INFORMATION
  Report Type: 
  Country: US (occurrence: US)
  Receive Date: 20121101
  Receipt Date: 20121101
  Transmission Date: 20130627
  Serious: Yes (Other)
  Sender: FDA-Public Use
  Company Number: US-PFIZER INC-2012268458

PATIENT
  Age: 57 Year
  Sex: Female
  Weight: 77.1 kg

DRUGS (9)
  1. GABAPENTIN [Suspect]
     Indication: NEUROPATHY PERIPHERAL
     Dosage: 600 mg, 4x/day
     Route: 048
  2. GABAPENTIN [Suspect]
     Indication: POLYNEUROPATHY
     Dosage: 400 mg six times a day
     Route: 048
     Dates: start: 201210
  3. GABAPENTIN [Suspect]
     Dosage: 800 mg (two capsules of 400mg), 3x/day
     Route: 048
     Dates: start: 201210, end: 201210
  4. METFORMIN [Concomitant]
     Indication: DIABETES
     Dosage: 1000 mg, 2x/day
  5. BUMETANIDE [Concomitant]
     Dosage: 1 mg, 1x/day
  6. TRAZODONE [Concomitant]
     Dosage: 200 mg, 1x/day
  7. MORPHINE [Concomitant]
     Dosage: 15 mg, 4x/day
  8. MS-CONTIN [Concomitant]
     Dosage: 30 mg, 3x/day
  9. CARISOPRODOL [Concomitant]
     Dosage: 350 mg, 4x/day

REACTIONS (4)
  - Hiatus hernia [Not Recovered/Not Resolved]
  - Gastrooesophageal reflux disease [Not Recovered/Not Resolved]
  - Chest discomfort [Not Recovered/Not Resolved]
  - Dysphonia [Not Recovered/Not Resolved]
